FAERS Safety Report 8235153-0 (Version None)
Quarter: 2012Q1

REPORT INFORMATION
  Report Type: 
  Country: None (occurrence: None)
  Receive Date: 20120326
  Receipt Date: 20120319
  Transmission Date: 20120608
  Serious: Yes (Other)
  Sender: FDA-Public Use
  Company Number: US-BAYER-2012-000097

PATIENT
  Age: 19 Year
  Sex: Female
  Weight: 88.435 kg

DRUGS (7)
  1. YAZ [Suspect]
     Dosage: UNK
     Dates: start: 20030101, end: 20090801
  2. ATROVENT [Concomitant]
     Indication: ASTHMA
     Dosage: UNK
     Dates: start: 20090701
  3. TOPAMAX [Concomitant]
     Dosage: UNK
     Dates: start: 20090701
  4. YASMIN [Suspect]
     Dosage: UNK
     Dates: start: 20030601, end: 20090801
  5. PULMICORT [Concomitant]
     Indication: ASTHMA
     Dosage: UNK
     Dates: start: 20090701
  6. ASCORBIC ACID [Concomitant]
     Dosage: UNK
     Dates: start: 20090701
  7. INTAL [Concomitant]

REACTIONS (2)
  - THROMBOSIS [None]
  - THROMBOPHLEBITIS SUPERFICIAL [None]
